FAERS Safety Report 10631307 (Version 1)
Quarter: 2014Q4

REPORT INFORMATION
  Report Type: Spontaneous
  Country: US (occurrence: US)
  Receive Date: 20141205
  Receipt Date: 20141205
  Transmission Date: 20150529
  Serious: Yes (Other)
  Sender: FDA-Public Use
  Company Number: US-BRISTOL-MYERS SQUIBB COMPANY-21490461

PATIENT
  Age: 16 Year
  Sex: Female
  Weight: 56.23 kg

DRUGS (1)
  1. ABILIFY [Suspect]
     Active Substance: ARIPIPRAZOLE
     Indication: DEPRESSION
     Dates: start: 201211

REACTIONS (3)
  - Type 2 diabetes mellitus [Unknown]
  - Weight increased [Unknown]
  - Off label use [Unknown]
